FAERS Safety Report 15952323 (Version 1)
Quarter: 2019Q1

REPORT INFORMATION
  Report Type: Spontaneous
  Country: US (occurrence: US)
  Receive Date: 20190212
  Receipt Date: 20190212
  Transmission Date: 20190417
  Serious: No
  Sender: FDA-Public Use
  Company Number: US-SA-2019SA038192

PATIENT
  Age: 55 Year
  Sex: Male

DRUGS (1)
  1. DUPIXENT [Suspect]
     Active Substance: DUPILUMAB
     Indication: ECZEMA
     Dosage: 1200 MG, 1X
     Route: 058
     Dates: start: 20190128, end: 20190128

REACTIONS (1)
  - Incorrect dose administered [Unknown]

NARRATIVE: CASE EVENT DATE: 20190128
